FAERS Safety Report 6929659-1 (Version None)
Quarter: 2010Q3

REPORT INFORMATION
  Report Type: 
  Country: None (occurrence: None)
  Receive Date: 20100813
  Receipt Date: 20100804
  Transmission Date: 20110219
  Serious: Yes (Other)
  Sender: FDA-Public Use
  Company Number: 016726

PATIENT
  Age: 63 Year
  Sex: Male

DRUGS (1)
  1. OMEPRAZOLE [Suspect]
     Indication: REFLUX OESOPHAGITIS
     Dosage: 20 MG QD, MORNING DOSE

REACTIONS (12)
  - ANTINUCLEAR ANTIBODY INCREASED [None]
  - ARTHRALGIA [None]
  - ARTHRITIS [None]
  - CARDIOLIPIN ANTIBODY POSITIVE [None]
  - ERYTHEMA [None]
  - HISTONE ANTIBODY POSITIVE [None]
  - JOINT SWELLING [None]
  - LUPUS-LIKE SYNDROME [None]
  - MALAISE [None]
  - OEDEMA [None]
  - PYREXIA [None]
  - RAYNAUD'S PHENOMENON [None]
